FAERS Safety Report 4478693-2 (Version None)
Quarter: 2004Q3

REPORT INFORMATION
  Report Type: 
  Country: None (occurrence: None)
  Receive Date: 20040923
  Receipt Date: 20040611
  Transmission Date: 20050211
  Serious: No
  Sender: FDA-Public Use
  Company Number: USA040669215

PATIENT
  Age: 58 Year
  Sex: Female
  Weight: 51 kg

DRUGS (9)
  1. FORTEO [Suspect]
     Indication: OSTEOPOROSIS
     Dosage: 20 UG/1 DAY
     Dates: start: 20040603
  2. EVISTA [Concomitant]
  3. THYROID TAB [Concomitant]
  4. PRILOSEC [Concomitant]
  5. NASONEX [Concomitant]
  6. CITRACAL (CALCIUM CITRATE) [Concomitant]
  7. CALCIUM PLUS D [Concomitant]
  8. CALCIUM PLUS MINERALS [Concomitant]
  9. VITAMIN D [Concomitant]

REACTIONS (4)
  - INJECTION SITE ERYTHEMA [None]
  - INJECTION SITE HAEMORRHAGE [None]
  - INJECTION SITE PAIN [None]
  - INJECTION SITE VESICLES [None]
